FAERS Safety Report 24652918 (Version 1)
Quarter: 2024Q4

REPORT INFORMATION
  Report Type: Report from Study
  Country: US (occurrence: US)
  Receive Date: 20241122
  Receipt Date: 20241122
  Transmission Date: 20250114
  Serious: Yes (Other)
  Sender: NOVARTIS
  Company Number: US-002147023-NVSC2024US032364

PATIENT
  Sex: Female

DRUGS (1)
  1. KESIMPTA [Suspect]
     Active Substance: OFATUMUMAB
     Indication: Multiple sclerosis
     Dosage: 20 MG, OTHER, ONCE A WEEK FOR 3 WEEKS, SKIP WEEK 4, ON WEEK 5 START MONTHLY
     Route: 058
     Dates: start: 20240203

REACTIONS (11)
  - Immunodeficiency [Unknown]
  - Injection site erythema [Recovered/Resolved]
  - Injection site pain [Recovered/Resolved]
  - Attention deficit hyperactivity disorder [Unknown]
  - Skin irritation [Unknown]
  - Mood altered [Unknown]
  - Dry mouth [Unknown]
  - Dizziness [Unknown]
  - Urinary tract disorder [Unknown]
  - Pain in extremity [Unknown]
  - Impaired healing [Unknown]
